FAERS Safety Report 7217907-2 (Version None)
Quarter: 2011Q1

REPORT INFORMATION
  Report Type: 
  Country: None (occurrence: None)
  Receive Date: 20110110
  Receipt Date: 20110106
  Transmission Date: 20110831
  Serious: Yes (Hospitalization, Other)
  Sender: FDA-Public Use
  Company Number: BR-ABBOTT-10P-020-0689050-00

PATIENT
  Sex: Female
  Weight: 35 kg

DRUGS (2)
  1. HUMIRA [Suspect]
     Indication: RHEUMATOID ARTHRITIS
     Route: 058
  2. UNKNOWN [Concomitant]
     Indication: HYPERTENSION
     Route: 048

REACTIONS (10)
  - DYSPHAGIA [None]
  - HYPOTENSION [None]
  - INJECTION SITE SWELLING [None]
  - LOSS OF CONSCIOUSNESS [None]
  - DIABETES MELLITUS [None]
  - INJECTION SITE ERYTHEMA [None]
  - BLOOD GLUCOSE DECREASED [None]
  - URINARY TRACT INFECTION [None]
  - EMPHYSEMA [None]
  - INJECTION SITE VESICLES [None]
